FAERS Safety Report 17652703 (Version 1)
Quarter: 2020Q2

REPORT INFORMATION
  Report Type: Spontaneous
  Country: US (occurrence: US)
  Receive Date: 20200409
  Receipt Date: 20200409
  Transmission Date: 20200713
  Serious: No
  Sender: FDA-Public Use
  Company Number: US-ASTRAZENECA-2020SE43366

PATIENT
  Sex: Male

DRUGS (1)
  1. PULMICORT FLEXHALER [Suspect]
     Active Substance: BUDESONIDE
     Indication: RESPIRATORY DISORDER
     Dosage: 60 DOSES TWICE DAILY FOR 5 DAYS
     Route: 055

REACTIONS (2)
  - Wrong technique in device usage process [Unknown]
  - Malaise [Unknown]
